FAERS Safety Report 6562007-8 (Version None)
Quarter: 2010Q1

REPORT INFORMATION
  Report Type: 
  Country: None (occurrence: None)
  Receive Date: 20100130
  Receipt Date: 20091116
  Transmission Date: 20100710
  Serious: No
  Sender: FDA-Public Use
  Company Number: PR-ABBOTT-09P-131-0595350-00

PATIENT
  Sex: Female
  Weight: 87.168 kg

DRUGS (8)
  1. HUMIRA [Suspect]
     Indication: RHEUMATOID ARTHRITIS
     Route: 058
  2. LYRICA [Concomitant]
     Indication: FIBROMYALGIA
     Route: 048
  3. SKELAXIN [Concomitant]
     Indication: FIBROMYALGIA
     Dosage: 1 TAB AS NEEDED
     Route: 048
  4. AMBIEN CR [Concomitant]
     Indication: SLEEP DISORDER
     Dosage: 1 TAB IN HS AS NEEEDED
     Route: 048
  5. PRISTIQ [Concomitant]
     Indication: ANXIETY
     Dosage: 1 TAB IN AM
     Route: 048
  6. TRANXENE [Concomitant]
     Indication: ANXIETY
     Dosage: 1 TAB DAILY
     Route: 048
  7. CALTRATE PLUS [Concomitant]
     Indication: RHEUMATOID ARTHRITIS
     Dosage: 1 TAB DAILY
     Route: 048
  8. CALTRATE PLUS [Concomitant]
     Indication: FIBROMYALGIA

REACTIONS (4)
  - INJECTION SITE DISCOLOURATION [None]
  - INJECTION SITE ERYTHEMA [None]
  - INJECTION SITE PAIN [None]
  - PRURITUS [None]
